FAERS Safety Report 8157863-6 (Version None)
Quarter: 2012Q1

REPORT INFORMATION
  Report Type: 
  Country: None (occurrence: None)
  Receive Date: 20120222
  Receipt Date: 20111214
  Transmission Date: 20120608
  Serious: Yes (Other)
  Sender: FDA-Public Use
  Company Number: PHHY2011KR110120

PATIENT
  Sex: Female

DRUGS (1)
  1. EXJADE [Suspect]
     Indication: IRON OVERLOAD
     Dosage: UNK UKN, UNK
     Route: 048
     Dates: start: 20100614

REACTIONS (3)
  - NERVOUS SYSTEM DISORDER [None]
  - RED BLOOD CELL COUNT DECREASED [None]
  - VISUAL ACUITY REDUCED [None]
